FAERS Safety Report 4288770-7 (Version None)
Quarter: 2004Q1

REPORT INFORMATION
  Report Type: 
  Country: None (occurrence: None)
  Receive Date: 20040205
  Receipt Date: 20031219
  Transmission Date: 20041129
  Serious: Yes (Hospitalization)
  Sender: FDA-Public Use
  Company Number: F01200301516

PATIENT
  Age: 62 Year
  Sex: Female

DRUGS (3)
  1. (OXALIPLATIN) - SOLUTION - 229 MG [Suspect]
     Indication: COLORECTAL CANCER METASTATIC
     Dosage: 229 MG Q3W INTRAVENOUS NOS
     Route: 042
     Dates: start: 20031113, end: 20031113
  2. (CAPECITABINE) - TABLET - 650 MG [Suspect]
     Dosage: 650 MG TWICE DAILY FROM DAY 1 TO DAY 15, Q3W, ORAL
     Route: 048
     Dates: start: 20031113, end: 20031123
  3. MEGEFREN (MEGESTROL) [Concomitant]

REACTIONS (26)
  - AMMONIA INCREASED [None]
  - ASPARTATE AMINOTRANSFERASE INCREASED [None]
  - ATELECTASIS [None]
  - BACTERAEMIA [None]
  - BLOOD BILIRUBIN INCREASED [None]
  - BLOOD GLUCOSE INCREASED [None]
  - BLOOD PH INCREASED [None]
  - BLOOD POTASSIUM DECREASED [None]
  - CARCINOEMBRYONIC ANTIGEN INCREASED [None]
  - CEREBRAL INFARCTION [None]
  - CONFUSIONAL STATE [None]
  - DEPRESSION [None]
  - DIARRHOEA [None]
  - DISORIENTATION [None]
  - ENCEPHALOPATHY [None]
  - GAMMA-GLUTAMYLTRANSFERASE INCREASED [None]
  - HYPOPROTEINAEMIA [None]
  - METASTASES TO CENTRAL NERVOUS SYSTEM [None]
  - OXYGEN SATURATION DECREASED [None]
  - PCO2 DECREASED [None]
  - PLATELET COUNT DECREASED [None]
  - PO2 DECREASED [None]
  - PROTEIN TOTAL DECREASED [None]
  - SOMNOLENCE [None]
  - URINARY TRACT INFECTION [None]
  - WHITE BLOOD CELL COUNT DECREASED [None]
